FAERS Safety Report 4852579-3 (Version None)
Quarter: 2005Q4

REPORT INFORMATION
  Report Type: 
  Country: None (occurrence: None)
  Receive Date: 20051213
  Receipt Date: 20050809
  Transmission Date: 20060501
  Serious: Yes (Hospitalization, Other)
  Sender: FDA-Public Use
  Company Number: PHBS2005JP11713

PATIENT
  Age: 69 Year
  Sex: Female
  Weight: 52 kg

DRUGS (5)
  1. AREDIA [Suspect]
     Indication: METASTASES TO BONE
     Dosage: 45 MG / 2 WEEKS
     Route: 042
     Dates: start: 20031007, end: 20050419
  2. FURTULON [Suspect]
     Indication: BREAST CANCER METASTATIC
     Dosage: 800 MG, BID
     Route: 048
     Dates: start: 20030930
  3. PROGESTON WYETH [Concomitant]
     Indication: METASTASES TO BONE
     Dosage: 800 MG/D
     Route: 048
     Dates: start: 20030930, end: 20041130
  4. ENDOXAN [Concomitant]
     Indication: METASTASES TO BONE
     Dosage: 100 MG/D
     Route: 048
     Dates: start: 20030930, end: 20041130
  5. ARIMIDEX [Concomitant]
     Indication: METASTASES TO BONE
     Dosage: 1 MG/D
     Route: 048
     Dates: start: 20050802

REACTIONS (4)
  - IMPAIRED HEALING [None]
  - OSTEOMYELITIS CHRONIC [None]
  - SURGERY [None]
  - TOOTH EXTRACTION [None]
